FAERS Safety Report 4972126-5 (Version None)
Quarter: 2006Q2

REPORT INFORMATION
  Report Type: 
  Country: None (occurrence: None)
  Receive Date: 20060412
  Receipt Date: 20060412
  Transmission Date: 20061013
  Serious: Yes (Hospitalization)
  Sender: FDA-Public Use
  Company Number: None

PATIENT
  Sex: Female

DRUGS (1)
  1. GEODON [Suspect]
     Indication: PSYCHOTIC DISORDER
     Dosage: 1 C BID
     Dates: start: 20060305, end: 20060307

REACTIONS (3)
  - AGITATION [None]
  - CONFUSIONAL STATE [None]
  - DISORIENTATION [None]
